FAERS Safety Report 7634214-4 (Version None)
Quarter: 2011Q3

REPORT INFORMATION
  Report Type: 
  Country: None (occurrence: None)
  Receive Date: 20110725
  Receipt Date: 20110711
  Transmission Date: 20111222
  Serious: Yes (Hospitalization, Other)
  Sender: FDA-Public Use
  Company Number: AU-BAYER-2011-054205

PATIENT
  Age: 72 Year
  Sex: Male
  Weight: 100 kg

DRUGS (14)
  1. OMEPRAZOLE [Concomitant]
     Dosage: 20 MG, UNK
     Route: 048
     Dates: start: 20101204
  2. ACETYLSALICYLIC ACID SRT [Interacting]
     Indication: PULMONARY EMBOLISM
     Dosage: 100 MG, UNK
     Route: 048
     Dates: start: 20101204
  3. LANTUS [Concomitant]
     Dosage: 47 U, UNK
     Route: 058
     Dates: start: 20110107
  4. METOPROLOL TARTRATE [Concomitant]
     Dosage: 100 MG, UNK
     Route: 048
     Dates: start: 20000101
  5. ATORVASTATIN [Concomitant]
     Dosage: 40 MG, UNK
     Route: 048
     Dates: start: 20000101
  6. LERCANIDIPINE [Concomitant]
     Dosage: 20 MG, UNK
     Route: 048
     Dates: start: 20101221
  7. ENOXAPARIN [Suspect]
     Indication: PULMONARY EMBOLISM
     Dosage: 100 MG, BID
     Route: 058
     Dates: start: 20101203, end: 20101208
  8. ENOXAPARIN [Suspect]
     Dosage: 200 MG, UNK
     Route: 058
     Dates: start: 20101227, end: 20101229
  9. ENOXAPARIN [Suspect]
     Dosage: 200 MG, UNK
     Route: 058
     Dates: start: 20110103, end: 20110103
  10. FLUOXETINE [Concomitant]
     Dosage: 20 MG, UNK
     Route: 048
     Dates: start: 20100101
  11. WARFARIN SODIUM [Interacting]
     Indication: PULMONARY EMBOLISM
     Dosage: INR ADJUSTED
     Route: 048
     Dates: start: 20101203, end: 20110601
  12. WARFARIN SODIUM [Interacting]
     Dosage: INR ADJUSTED
     Route: 048
     Dates: start: 20110602
  13. ENOXAPARIN [Suspect]
     Dosage: 200 MG, UNK
     Route: 058
     Dates: start: 20101218, end: 20101222
  14. PERINDOPRIL [Concomitant]
     Dosage: 10 MG, UNK
     Route: 048
     Dates: start: 20000101

REACTIONS (4)
  - HAEMATURIA [None]
  - FALL [None]
  - SYNCOPE [None]
  - HAEMORRHAGE URINARY TRACT [None]
